FAERS Safety Report 25636738 (Version 2)
Quarter: 2025Q3

REPORT INFORMATION
  Report Type: Spontaneous
  Country: TR (occurrence: TR)
  Receive Date: 20250804
  Receipt Date: 20250814
  Transmission Date: 20251020
  Serious: Yes (Death, Life-Threatening, Hospitalization, Other)
  Sender: STRIDES
  Company Number: None

PATIENT
  Age: 34 Year
  Sex: Female

DRUGS (12)
  1. METHOTREXATE [Suspect]
     Active Substance: METHOTREXATE
     Indication: Acute lymphocytic leukaemia
     Route: 065
     Dates: start: 20250106, end: 20250108
  2. METHOTREXATE [Suspect]
     Active Substance: METHOTREXATE
     Route: 037
  3. METHOTREXATE [Suspect]
     Active Substance: METHOTREXATE
     Route: 037
     Dates: start: 20240114
  4. PREDNISONE [Suspect]
     Active Substance: PREDNISONE
     Indication: Acute lymphocytic leukaemia
     Route: 065
     Dates: start: 20250106, end: 20250109
  5. CYTARABINE [Suspect]
     Active Substance: CYTARABINE
     Indication: B-cell type acute leukaemia
     Route: 065
     Dates: start: 20250106, end: 20250108
  6. CYTARABINE [Suspect]
     Active Substance: CYTARABINE
     Route: 065
  7. CYTARABINE [Suspect]
     Active Substance: CYTARABINE
     Route: 065
     Dates: start: 20240114
  8. CYCLOPHOSPHAMIDE [Suspect]
     Active Substance: CYCLOPHOSPHAMIDE
     Indication: B-cell type acute leukaemia
     Route: 065
     Dates: start: 202412, end: 202412
  9. VINCRISTINE [Suspect]
     Active Substance: VINCRISTINE
     Indication: B-cell type acute leukaemia
     Route: 065
     Dates: start: 202412, end: 202412
  10. ADRIAMYCIN [Suspect]
     Active Substance: DOXORUBICIN HYDROCHLORIDE
     Indication: B-cell type acute leukaemia
     Route: 065
     Dates: start: 202412, end: 202412
  11. DEFLAZACORT [Suspect]
     Active Substance: DEFLAZACORT
     Indication: B-cell type acute leukaemia
     Route: 065
     Dates: start: 202412, end: 202412
  12. FOLIC ACID [Concomitant]
     Active Substance: FOLIC ACID
     Indication: Product used for unknown indication
     Route: 065
     Dates: start: 202501

REACTIONS (6)
  - Multiple organ dysfunction syndrome [Fatal]
  - Neutropenia [Fatal]
  - Hypernatraemia [Fatal]
  - Respiratory arrest [Fatal]
  - Cardiac arrest [Fatal]
  - SJS-TEN overlap [Fatal]

NARRATIVE: CASE EVENT DATE: 20250101
